FAERS Safety Report 7086534-2 (Version None)
Quarter: 2010Q4

REPORT INFORMATION
  Report Type: 
  Country: None (occurrence: None)
  Receive Date: 20101028
  Receipt Date: 20101019
  Transmission Date: 20110411
  Serious: Yes (Hospitalization)
  Sender: FDA-Public Use
  Company Number: 2010JP005855

PATIENT
  Age: 47 Year
  Sex: Female
  Weight: 43.7 kg

DRUGS (8)
  1. VESICARE [Suspect]
     Indication: HYPERTONIC BLADDER
     Dosage: 5 MG, UID/QD. ORAL
     Route: 048
     Dates: start: 20100914, end: 20100923
  2. RABEPRAZOLE SODIUM [Concomitant]
  3. MUCOSTA (REBAMIPIDE) TABLET [Concomitant]
  4. SEDIEL (TANDOSPRIRONE CITRATE) TABLET [Concomitant]
  5. SERTRALINE HYDROCHLORIDE [Concomitant]
  6. LAC B (LACTOBACILLUS BIFIDUS, LYOPHILIZED) TABLET [Concomitant]
  7. MYSLEE (ZOLPIDEM) TABLET [Concomitant]
  8. DUROTEP (FENTANYL) [Concomitant]

REACTIONS (1)
  - ILEUS [None]
